FAERS Safety Report 8215501-8 (Version None)
Quarter: 2012Q1

REPORT INFORMATION
  Report Type: 
  Country: None (occurrence: None)
  Receive Date: 20120316
  Receipt Date: 20120312
  Transmission Date: 20120608
  Serious: Yes (Death, Other)
  Sender: FDA-Public Use
  Company Number: FR-ROCHE-1043192

PATIENT
  Age: 88 Year
  Sex: Male

DRUGS (1)
  1. RANIBIZUMAB [Suspect]
     Indication: AGE-RELATED MACULAR DEGENERATION
     Dosage: DATES FOR REGIMEN 2,3, 11 AND 12 WERE NOT PROVIDED
     Route: 050
     Dates: start: 20070711

REACTIONS (2)
  - VISUAL ACUITY REDUCED [None]
  - DEATH [None]
